FAERS Safety Report 9296868 (Version 1)
Quarter: 2013Q2

REPORT INFORMATION
  Report Type: Spontaneous
  Country: US (occurrence: US)
  Receive Date: 20130517
  Receipt Date: 20130517
  Transmission Date: 20140414
  Serious: No
  Sender: FDA-Public Use
  Company Number: US-PFIZER INC-2013151219

PATIENT
  Sex: Female

DRUGS (2)
  1. LYRICA [Suspect]
     Dosage: UNK
     Dates: start: 20100511
  2. CELEBREX [Suspect]
     Dosage: UNK

REACTIONS (3)
  - Influenza [Unknown]
  - Bone pain [Unknown]
  - Weight increased [Unknown]
